FAERS Safety Report 8401037-8 (Version None)
Quarter: 2012Q2

REPORT INFORMATION
  Report Type: 
  Country: None (occurrence: None)
  Receive Date: 20120525
  Receipt Date: 20120515
  Transmission Date: 20120825
  Serious: Yes (Other)
  Sender: FDA-Public Use
  Company Number: 1272823

PATIENT
  Age: 59 Year
  Sex: Male
  Weight: 81.7 kg

DRUGS (4)
  1. FENTANYL [Concomitant]
  2. ZOFRAN [Concomitant]
  3. METOCLOPRAMIDE [Suspect]
     Indication: PROCEDURAL VOMITING
     Dosage: 10 MG, X1   INTRAVENOUS (NOT OTHERWISE SPECIFIED)
     Route: 042
     Dates: start: 20120430, end: 20120430
  4. METOCLOPRAMIDE [Suspect]
     Indication: PROCEDURAL NAUSEA
     Dosage: 10 MG, X1   INTRAVENOUS (NOT OTHERWISE SPECIFIED)
     Route: 042
     Dates: start: 20120430, end: 20120430

REACTIONS (2)
  - BLOOD PRESSURE DECREASED [None]
  - MEAN ARTERIAL PRESSURE DECREASED [None]
